FAERS Safety Report 19921323 (Version 1)
Quarter: 2021Q4

REPORT INFORMATION
  Report Type: Other
  Country: CA (occurrence: CA)
  Receive Date: 20211006
  Receipt Date: 20211006
  Transmission Date: 20220304
  Serious: Yes (Death, Other)
  Sender: FDA-Public Use
  Company Number: CA-APOTEX-2021AP043377

PATIENT
  Age: 57 Year
  Sex: Female

DRUGS (1)
  1. KISQALI [Suspect]
     Active Substance: RIBOCICLIB
     Indication: Breast cancer metastatic
     Dosage: UNK
     Route: 048

REACTIONS (8)
  - Death [Fatal]
  - Abdominal distension [Unknown]
  - Malaise [Unknown]
  - Nasal dryness [Unknown]
  - Peripheral swelling [Unknown]
  - Swelling face [Unknown]
  - Epistaxis [Unknown]
  - Nausea [Unknown]
